FAERS Safety Report 15237934 (Version 5)
Quarter: 2019Q1

REPORT INFORMATION
  Report Type: Report from Study
  Country: US (occurrence: US)
  Receive Date: 20180803
  Receipt Date: 20190311
  Transmission Date: 20190417
  Serious: Yes (Other)
  Sender: FDA-Public Use
  Company Number: US-PFIZER INC-2018284304

PATIENT
  Age: 62 Year
  Sex: Female

DRUGS (2)
  1. SUTENT [Suspect]
     Active Substance: SUNITINIB MALATE
     Dosage: 50 MG, 1X/DAY
     Route: 048
     Dates: start: 20180629, end: 20180824
  2. SUTENT [Suspect]
     Active Substance: SUNITINIB MALATE
     Indication: RENAL CELL CARCINOMA
     Dosage: 50 MG, CYCLIC (DAILY/2 WEEKS ON, 1 WEEK OFF)
     Route: 048
     Dates: start: 20180706

REACTIONS (17)
  - Thrombocytopenia [Unknown]
  - Nausea [Recovering/Resolving]
  - Hypertension [Recovered/Resolved]
  - Dizziness [Recovering/Resolving]
  - Fatigue [Recovered/Resolved]
  - Tinnitus [Unknown]
  - Visual impairment [Recovered/Resolved]
  - Bone marrow failure [Unknown]
  - Diarrhoea [Unknown]
  - Pruritus [Unknown]
  - Palmar-plantar erythrodysaesthesia syndrome [Recovered/Resolved]
  - Dysgeusia [Unknown]
  - Cardiac disorder [Unknown]
  - Transaminases increased [Recovered/Resolved]
  - Thyroid disorder [Unknown]
  - Anxiety [Unknown]
  - Temporomandibular joint syndrome [Unknown]

NARRATIVE: CASE EVENT DATE: 2018
